FAERS Safety Report 14025815 (Version 2)
Quarter: 2017Q4

REPORT INFORMATION
  Report Type: Report from Study
  Country: None (occurrence: CA)
  Receive Date: 20170929
  Receipt Date: 20171006
  Transmission Date: 20180321
  Serious: Yes (Death, Hospitalization)
  Sender: FDA-Public Use
  Company Number: CA-ABBVIE-16K-028-1687586-00

PATIENT
  Age: 83 Year
  Sex: Male
  Weight: 7 kg

DRUGS (5)
  1. ASACOL [Concomitant]
     Active Substance: MESALAMINE
     Indication: PRODUCT USED FOR UNKNOWN INDICATION
     Route: 048
  2. HUMIRA [Suspect]
     Active Substance: ADALIMUMAB
     Indication: COLITIS ULCERATIVE
     Route: 058
     Dates: start: 20121005
  3. ACETAMINOPHEN. [Concomitant]
     Active Substance: ACETAMINOPHEN
     Indication: PRODUCT USED FOR UNKNOWN INDICATION
     Route: 048
  4. TRAZODONE [Concomitant]
     Active Substance: TRAZODONE HYDROCHLORIDE
     Indication: PRODUCT USED FOR UNKNOWN INDICATION
     Route: 048
  5. FERROUS SULFATE. [Concomitant]
     Active Substance: FERROUS SULFATE
     Indication: PRODUCT USED FOR UNKNOWN INDICATION
     Route: 048

REACTIONS (19)
  - Depressed level of consciousness [Unknown]
  - Malaise [Unknown]
  - Pyrexia [Unknown]
  - Myocardial infarction [Unknown]
  - Constipation [Unknown]
  - Tachypnoea [Unknown]
  - Venous pressure jugular increased [Unknown]
  - Confusional state [Unknown]
  - Back pain [Unknown]
  - Pneumonia [Not Recovered/Not Resolved]
  - Lethargy [Unknown]
  - Pulmonary oedema [Unknown]
  - Acute myocardial infarction [Fatal]
  - Sepsis [Fatal]
  - Asthenia [Unknown]
  - Musculoskeletal chest pain [Recovered/Resolved]
  - Fatigue [Unknown]
  - Hypokinesia [Unknown]
  - Cough [Unknown]

NARRATIVE: CASE EVENT DATE: 2016
